FAERS Safety Report 22153319 (Version 1)
Quarter: 2023Q1

REPORT INFORMATION
  Report Type: Report from Study
  Country: US (occurrence: US)
  Receive Date: 20230329
  Receipt Date: 20230329
  Transmission Date: 20230417
  Serious: Yes (Hospitalization)
  Sender: FDA-Public Use
  Company Number: US-ABBVIE-4707835

PATIENT
  Age: 67 Year
  Sex: Male

DRUGS (2)
  1. SKYRIZI [Suspect]
     Active Substance: RISANKIZUMAB-RZAA
     Indication: Psoriasis
     Dosage: FORM STRENGTH: 150 MILLIGRAM, WEEK 0, 150MG AT WEEK 0, THEN WEEK 4, THEN EVERY 12 WEEKS THEREAFTER.
     Route: 058
     Dates: start: 202302, end: 202302
  2. SKYRIZI [Suspect]
     Active Substance: RISANKIZUMAB-RZAA
     Dosage: FORM STRENGTH: 150 MILLIGRAM, WEEK 4, 150MG AT WEEK 0, THEN WEEK 4, THEN EVERY 12 WEEKS THEREAFTER.
     Route: 058
     Dates: start: 20230315

REACTIONS (7)
  - Oesophageal obstruction [Unknown]
  - Skin burning sensation [Not Recovered/Not Resolved]
  - Pain of skin [Unknown]
  - Erythema [Unknown]
  - Pruritus [Not Recovered/Not Resolved]
  - Sciatica [Recovering/Resolving]
  - Papule [Not Recovered/Not Resolved]

NARRATIVE: CASE EVENT DATE: 20230301
